FAERS Safety Report 22110578 (Version 1)
Quarter: 2023Q1

REPORT INFORMATION
  Report Type: Spontaneous
  Country: BR (occurrence: None)
  Receive Date: 20230317
  Receipt Date: 20230317
  Transmission Date: 20230418
  Serious: Yes (Other)
  Sender: FDA-Public Use
  Company Number: 2023A061050

PATIENT
  Sex: Female
  Weight: 60 kg

DRUGS (5)
  1. LYNPARZA [Suspect]
     Active Substance: OLAPARIB
     Indication: Ovarian cancer
     Dosage: 4 TABLETS DAILY (2 TABLETS IN THE MORNING AND 2 TABLETS AT NIGHT)
     Route: 048
     Dates: start: 202211, end: 2023
  2. LOSARTAN [Concomitant]
     Active Substance: LOSARTAN
     Indication: Blood pressure measurement
     Dosage: TWO TABLETS
  3. CARVEDILOL [Concomitant]
     Active Substance: CARVEDILOL
     Indication: Cardiac failure
     Dosage: A TABLET
  4. FOLIC ACID [Concomitant]
     Active Substance: FOLIC ACID
     Indication: Anaemia
     Dosage: A TABLET IN THE LUNCH
  5. VITAMIN B12 [Concomitant]
     Active Substance: CYANOCOBALAMIN
     Indication: Anaemia
     Dosage: A TABLET IN THE LUNCH

REACTIONS (8)
  - Nodule [Unknown]
  - Hepatic lesion [Unknown]
  - Anaemia [Unknown]
  - Illness [Unknown]
  - Cardiac failure [Unknown]
  - Liver injury [Unknown]
  - Asthenia [Unknown]
  - Platelet count decreased [Unknown]
